FAERS Safety Report 15900372 (Version 1)
Quarter: 2019Q1

REPORT INFORMATION
  Report Type: Spontaneous
  Country: DE (occurrence: DE)
  Receive Date: 20190201
  Receipt Date: 20190201
  Transmission Date: 20190417
  Serious: Yes (Death, Life-Threatening, Hospitalization, Other)
  Sender: FDA-Public Use
  Company Number: DE-BAYER-2019-018503

PATIENT
  Age: 64 Year
  Sex: Male

DRUGS (3)
  1. ACETYLSALICYLIC ACID({=100 MG) [Suspect]
     Active Substance: ASPIRIN
  2. CLOPIDOGREL [Suspect]
     Active Substance: CLOPIDOGREL BISULFATE
  3. HEPARIN [Suspect]
     Active Substance: HEPARIN SODIUM

REACTIONS (8)
  - Disseminated intravascular coagulation [None]
  - Circulatory collapse [None]
  - Cardiogenic shock [Fatal]
  - Metabolic disorder [Fatal]
  - Multiple organ dysfunction syndrome [Fatal]
  - Haemodynamic instability [None]
  - Labelled drug-drug interaction medication error [None]
  - Post procedural haemorrhage [None]
